FAERS Safety Report 17825753 (Version 2)
Quarter: 2020Q3

REPORT INFORMATION
  Report Type: Other
  Country: AT (occurrence: US)
  Receive Date: 20200526
  Receipt Date: 20200731
  Transmission Date: 20201102
  Serious: Yes (Other)
  Sender: FDA-Public Use
  Company Number: US-MERZ PHARMACEUTICALS GMBH-20-01842

PATIENT

DRUGS (1)
  1. GLYCOPYRRONIUM [Suspect]
     Active Substance: GLYCOPYRRONIUM
     Indication: DROOLING
     Route: 048

REACTIONS (2)
  - Condition aggravated [Unknown]
  - Seizure [Unknown]
